FAERS Safety Report 4795090-0 (Version None)
Quarter: 2005Q4

REPORT INFORMATION
  Report Type: 
  Country: None (occurrence: None)
  Receive Date: 20051006
  Receipt Date: 20050923
  Transmission Date: 20060501
  Serious: Yes (Hospitalization, Other)
  Sender: FDA-Public Use
  Company Number: 2005BI008546

PATIENT
  Sex: Female
  Weight: 49.8957 kg

DRUGS (4)
  1. AVONEX [Suspect]
     Indication: MULTIPLE SCLEROSIS
     Dosage: 30 UG;QW; IM
     Route: 030
     Dates: start: 20011001, end: 20020101
  2. AVONEX [Suspect]
     Indication: MULTIPLE SCLEROSIS
     Dosage: 30 UG;QW; IM
     Route: 030
     Dates: start: 20050322, end: 20050401
  3. SOMA [Concomitant]
  4. TRANZENE [Concomitant]

REACTIONS (14)
  - AMNESIA [None]
  - ANEURYSM [None]
  - COMMUNICATION DISORDER [None]
  - DEPRESSION [None]
  - DISORIENTATION [None]
  - EYE DISORDER [None]
  - MUSCLE SPASMS [None]
  - OVERDOSE [None]
  - POST PROCEDURAL COMPLICATION [None]
  - POSTOPERATIVE INFECTION [None]
  - ROAD TRAFFIC ACCIDENT [None]
  - STAPHYLOCOCCAL INFECTION [None]
  - SUBDURAL EMPYEMA [None]
  - SUICIDE ATTEMPT [None]
